FAERS Safety Report 8830033 (Version 2)
Quarter: 2012Q4

REPORT INFORMATION
  Report Type: 
  Country: US (occurrence: US)
  Receive Date: 20121008
  Receipt Date: 20121129
  Transmission Date: 20130627
  Serious: Yes (Hospitalization, Other)
  Sender: FDA-Public Use
  Company Number: US-009507513-1202USA02274

PATIENT

DRUGS (11)
  1. FOSAMAX [Suspect]
     Indication: OSTEOPOROSIS
     Dosage: 70 mg, qw
     Route: 048
     Dates: start: 20020330, end: 20060413
  2. FOSAMAX [Suspect]
     Dosage: 10 mg, qd
     Route: 048
     Dates: start: 20000816
  3. FOSAMAX D [Suspect]
     Route: 048
     Dates: start: 200203, end: 2009
  4. FOSAMAX [Suspect]
     Indication: OSTEOPOROSIS
     Dosage: UNK
     Route: 048
     Dates: start: 20020330, end: 20060413
  5. BONIVA [Suspect]
     Dosage: UNK
  6. IBANDRONATE SODIUM [Suspect]
     Dates: start: 200203, end: 2009
  7. CALCIUM (UNSPECIFIED) [Concomitant]
  8. POTASSIUM (UNSPECIFIED) [Concomitant]
  9. VITAMIN D (UNSPECIFIED) [Concomitant]
  10. VITAMINS (UNSPECIFIED) [Concomitant]
  11. PREMARIN [Concomitant]
     Indication: HORMONE THERAPY
     Dosage: UNK
     Dates: start: 1992

REACTIONS (59)
  - Open reduction of fracture [Unknown]
  - Femur fracture [Recovered/Resolved]
  - Femur fracture [Unknown]
  - Ligament sprain [Unknown]
  - Pain in extremity [Unknown]
  - Intramedullary rod insertion [Unknown]
  - Cervical dysplasia [Unknown]
  - Gastrooesophageal reflux disease [Unknown]
  - Muscle spasms [Unknown]
  - Hypoaesthesia [Unknown]
  - Varicose vein [Unknown]
  - Carotid bruit [Unknown]
  - Dyspepsia [Unknown]
  - Adverse drug reaction [Unknown]
  - Large intestine polyp [Unknown]
  - Fatigue [Unknown]
  - Fibrocystic breast disease [Unknown]
  - Gingival disorder [Unknown]
  - Cystitis [Unknown]
  - Sclerotherapy [Unknown]
  - Venous insufficiency [Unknown]
  - Hot flush [Unknown]
  - Scoliosis [Unknown]
  - Osteonecrosis [Unknown]
  - Faecal incontinence [Unknown]
  - Hypertonic bladder [Not Recovered/Not Resolved]
  - Hiatus hernia [Unknown]
  - Lumbar radiculopathy [Unknown]
  - Intervertebral disc degeneration [Unknown]
  - Spondylolisthesis [Unknown]
  - Spinal osteoarthritis [Unknown]
  - Spinal fusion surgery [Unknown]
  - Pain in extremity [Not Recovered/Not Resolved]
  - Bursitis [Unknown]
  - Dyspnoea exertional [Unknown]
  - Arthralgia [Unknown]
  - White blood cell count increased [Unknown]
  - Anaemia postoperative [Unknown]
  - Trigger finger [Unknown]
  - Arthralgia [Unknown]
  - Fall [Unknown]
  - Osteoarthritis [Unknown]
  - Joint arthroplasty [Unknown]
  - Pain in jaw [Unknown]
  - Bursitis [Unknown]
  - Morton^s neuroma [Unknown]
  - Arthritis [Unknown]
  - Bursitis [Unknown]
  - Tendonitis [Unknown]
  - Osteoarthritis [Unknown]
  - Arthritis [Unknown]
  - Trigger finger [Unknown]
  - Trigger finger [Unknown]
  - Fall [Unknown]
  - Pain in extremity [Unknown]
  - Shoulder arthroplasty [Unknown]
  - Urinary tract infection [Unknown]
  - Gout [Unknown]
  - Hypertension [Unknown]
